FAERS Safety Report 7002328-8 (Version None)
Quarter: 2010Q3

REPORT INFORMATION
  Report Type: 
  Country: None (occurrence: None)
  Receive Date: 20100920
  Receipt Date: 20100527
  Transmission Date: 20110219
  Serious: No
  Sender: FDA-Public Use
  Company Number: US-ASTRAZENECA-2010SE27798

PATIENT
  Age: 56 Year
  Sex: Male
  Weight: 102.5 kg

DRUGS (5)
  1. SEROQUEL [Suspect]
     Route: 048
     Dates: start: 20030910
  2. EFFEXOR XR [Concomitant]
     Indication: DEPRESSION
     Dosage: 75 MG TO 150 MG
     Dates: start: 20030618
  3. EFFEXOR XR [Concomitant]
     Indication: ANXIETY
     Dosage: 75 MG TO 150 MG
     Dates: start: 20030618
  4. THEOPHYLLINE [Concomitant]
     Dosage: 300 MG HALF TABLET BID
  5. XANAX [Concomitant]
     Dosage: 1-2 TABLETS TID

REACTIONS (18)
  - ABDOMINAL HERNIA [None]
  - BARRETT'S OESOPHAGUS [None]
  - CHRONIC OBSTRUCTIVE PULMONARY DISEASE [None]
  - DIABETES MELLITUS [None]
  - DUODENITIS [None]
  - GASTRITIS [None]
  - GASTROOESOPHAGEAL REFLUX DISEASE [None]
  - HYPERCHOLESTEROLAEMIA [None]
  - HYPERGLYCAEMIA [None]
  - LIPOMA [None]
  - MALE SEXUAL DYSFUNCTION [None]
  - OEDEMA PERIPHERAL [None]
  - OESOPHAGITIS [None]
  - ORCHITIS [None]
  - PERIARTHRITIS [None]
  - ROTATOR CUFF SYNDROME [None]
  - URINARY RETENTION [None]
  - URINARY TRACT INFECTION [None]
